FAERS Safety Report 10112286 (Version 3)
Quarter: 2014Q2

REPORT INFORMATION
  Report Type: Report from Study
  Country: JP (occurrence: JP)
  Receive Date: 20140425
  Receipt Date: 20140617
  Transmission Date: 20141212
  Serious: Yes (Death, Hospitalization, Other)
  Sender: FDA-Public Use
  Company Number: JP-BRISTOL-MYERS SQUIBB COMPANY-20394581

PATIENT
  Age: 35 Year
  Sex: Male
  Weight: 53.1 kg

DRUGS (19)
  1. IPILIMUMAB [Suspect]
     Indication: METASTATIC MALIGNANT MELANOMA
     Dosage: INT 13FEB14?DOSAGE:3MG/KG
     Route: 042
     Dates: start: 20140213, end: 20140213
  2. LOXOPROFEN SODIUM [Concomitant]
     Dates: start: 20140213
  3. TEPRENONE [Concomitant]
     Dates: start: 20140213
  4. DICLOFENAC SODIUM [Concomitant]
     Dates: start: 20140207, end: 20140304
  5. IRSOGLADINE MALEATE [Concomitant]
     Dates: start: 20140217, end: 20140304
  6. RABEPRAZOLE SODIUM [Concomitant]
     Dates: start: 20140217, end: 20140304
  7. ALLOPURINOL [Concomitant]
     Dates: start: 20140224, end: 20140304
  8. DOMPERIDONE [Concomitant]
     Dates: start: 20140224, end: 20140304
  9. ETIZOLAM [Concomitant]
     Dates: start: 20140302, end: 20140302
  10. BROTIZOLAM [Concomitant]
     Dates: start: 20140303, end: 20140303
  11. CALCIUM POLYSTYRENE SULFONATE [Concomitant]
     Dates: start: 20140303, end: 20140303
  12. GLUCOSE [Concomitant]
     Dates: start: 20140303, end: 20140304
  13. INSULIN HUMAN [Concomitant]
     Dates: start: 20140303, end: 20140303
  14. METOCLOPRAMIDE [Concomitant]
     Dates: start: 20140303, end: 20140304
  15. MEROPENEM [Concomitant]
     Dates: start: 20140303, end: 20140304
  16. CALCIUM GLUCONATE [Concomitant]
     Dates: start: 20140304, end: 20140304
  17. FUROSEMIDE [Concomitant]
     Dates: start: 20140304, end: 20140304
  18. HYDROXYZINE HCL [Concomitant]
     Dates: start: 20140304, end: 20140304
  19. SODIUM BICARBONATE [Concomitant]
     Dates: start: 20140304, end: 20140304

REACTIONS (3)
  - Tumour lysis syndrome [Not Recovered/Not Resolved]
  - Malignant neoplasm progression [Fatal]
  - Multi-organ failure [Fatal]
